FAERS Safety Report 24366299 (Version 1)
Quarter: 2024Q3

REPORT INFORMATION
  Report Type: Spontaneous
  Country: AU (occurrence: None)
  Receive Date: 20240925
  Receipt Date: 20240925
  Transmission Date: 20241017
  Serious: Yes (Disabling)
  Sender: Public
  Company Number: None

PATIENT
  Age: 53 Year
  Sex: Female
  Weight: 180 kg

DRUGS (6)
  1. EMGALITY [Suspect]
     Active Substance: GALCANEZUMAB-GNLM
  2. VALPROATE SODIUM [Concomitant]
     Active Substance: VALPROATE SODIUM
  3. PANTOPRAZOLE SODIUM [Concomitant]
     Active Substance: PANTOPRAZOLE SODIUM
  4. AGOMELATINE [Concomitant]
     Active Substance: AGOMELATINE
  5. lamogratine [Concomitant]
  6. PANADEINE FORTE [Concomitant]

REACTIONS (2)
  - Back pain [None]
  - Suicidal ideation [None]

NARRATIVE: CASE EVENT DATE: 20240101
